FAERS Safety Report 7996851-7 (Version None)
Quarter: 2011Q4

REPORT INFORMATION
  Report Type: 
  Country: None (occurrence: None)
  Receive Date: 20111221
  Receipt Date: 20111219
  Transmission Date: 20120403
  Serious: Yes (Other)
  Sender: FDA-Public Use
  Company Number: FR-BAYER-2011-122015

PATIENT
  Sex: Female

DRUGS (7)
  1. BETASERON [Suspect]
     Indication: MULTIPLE SCLEROSIS
     Dosage: 1 ML, UNK
  2. PRAZEPAM [Concomitant]
     Indication: DEPRESSION
  3. ZYPREXA [Concomitant]
     Indication: ANXIETY
     Dosage: 1 DF, BID
  4. ZOLOFT [Concomitant]
     Indication: DEPRESSION
  5. ZOLOFT [Concomitant]
     Indication: ANXIETY
     Dosage: 1 DF, QD
  6. ZYPREXA [Concomitant]
     Indication: DEPRESSION
  7. PRAZEPAM [Concomitant]
     Indication: ANXIETY
     Dosage: 1 DF, BID

REACTIONS (2)
  - OBSESSIVE-COMPULSIVE DISORDER [None]
  - DEPRESSION [None]
